FAERS Safety Report 9964129 (Version 1)
Quarter: 2014Q1

REPORT INFORMATION
  Report Type: Spontaneous
  Country: GB (occurrence: GB)
  Receive Date: 20140305
  Receipt Date: 20140305
  Transmission Date: 20141002
  Serious: Yes (Other)
  Sender: FDA-Public Use
  Company Number: GB-BAXTER-2014BAX010024

PATIENT
  Age: 41 Year
  Sex: Male

DRUGS (2)
  1. CYCLOPHOSPHAMIDE INJECTION 1G [Suspect]
     Indication: POEMS SYNDROME
     Route: 065
  2. DEXAMETHASONE [Suspect]
     Indication: POEMS SYNDROME
     Route: 065

REACTIONS (1)
  - No therapeutic response [Not Recovered/Not Resolved]
